FAERS Safety Report 8255288-6 (Version None)
Quarter: 2012Q2

REPORT INFORMATION
  Report Type: 
  Country: None (occurrence: None)
  Receive Date: 20120403
  Receipt Date: 20120330
  Transmission Date: 20120825
  Serious: Yes (Hospitalization)
  Sender: FDA-Public Use
  Company Number: FR-AMGEN-FRANI2012016483

PATIENT
  Age: 76 Year
  Sex: Male

DRUGS (1)
  1. ROMIPLOSTIM [Suspect]
     Indication: THROMBOCYTOPENIA
     Dosage: 6 MUG/KG, UNK
     Dates: start: 20110401, end: 20111201

REACTIONS (2)
  - THROMBOCYTOPENIA [None]
  - DRUG INEFFECTIVE [None]
